FAERS Safety Report 17076568 (Version 2)
Quarter: 2019Q4

REPORT INFORMATION
  Report Type: Spontaneous
  Country: US (occurrence: US)
  Receive Date: 20191126
  Receipt Date: 20191224
  Transmission Date: 20200122
  Serious: Yes (Other)
  Sender: FDA-Public Use
  Company Number: US-SA-2019SA322881

PATIENT
  Age: 72 Year
  Sex: Male

DRUGS (1)
  1. LANTUS SOLOSTAR [Suspect]
     Active Substance: INSULIN GLARGINE
     Indication: TYPE 2 DIABETES MELLITUS
     Dosage: 150 IU, BID
     Route: 065

REACTIONS (3)
  - Diabetes mellitus inadequate control [Unknown]
  - Device defective [Unknown]
  - Inappropriate schedule of product administration [Unknown]
